FAERS Safety Report 5129914-4 (Version None)
Quarter: 2006Q4

REPORT INFORMATION
  Report Type: 
  Country: None (occurrence: None)
  Receive Date: 20061013
  Receipt Date: 20060927
  Transmission Date: 20070319
  Serious: Yes (Hospitalization)
  Sender: FDA-Public Use
  Company Number: FR-2005-022909

PATIENT
  Age: 47 Year
  Sex: Female

DRUGS (1)
  1. BETASERON  (BETAFERON (SH Y 579E))(INTERFERON BETA -1B) INJECTION, 250 [Suspect]
     Indication: MULTIPLE SCLEROSIS
     Dosage: 8 MIU, EVERY 2D, SUBCUTANEOUS
     Route: 058
     Dates: start: 20041225

REACTIONS (7)
  - DERMOID CYST [None]
  - HAEMATOCRIT DECREASED [None]
  - LYMPHOCYTE COUNT DECREASED [None]
  - PAPILLARY THYROID CANCER [None]
  - POST PROCEDURAL HYPOTHYROIDISM [None]
  - PROCEDURAL PAIN [None]
  - PROTEIN TOTAL INCREASED [None]
